FAERS Safety Report 4308594-1 (Version None)
Quarter: 2004Q1

REPORT INFORMATION
  Report Type: 
  Country: None (occurrence: None)
  Receive Date: 20040226
  Receipt Date: 20030324
  Transmission Date: 20041129
  Serious: Yes (Hospitalization)
  Sender: FDA-Public Use
  Company Number: 2003152895US

PATIENT
  Sex: Female

DRUGS (1)
  1. CELEBREX [Suspect]
     Indication: OSTEOARTHRITIS
     Dosage: 100 MG, BID, ORAL
     Route: 048
     Dates: end: 20030227

REACTIONS (2)
  - DIARRHOEA [None]
  - ULCER HAEMORRHAGE [None]
